FAERS Safety Report 5250437-6 (Version None)
Quarter: 2007Q1

REPORT INFORMATION
  Report Type: 
  Country: None (occurrence: None)
  Receive Date: 20070228
  Receipt Date: 20060510
  Transmission Date: 20070707
  Serious: No
  Sender: FDA-Public Use
  Company Number: US-GLAXOSMITHKLINE-A0601841A

PATIENT
  Age: 34 Year
  Sex: Female
  Weight: 56.4 kg

DRUGS (4)
  1. LAMICTAL [Suspect]
     Indication: BIPOLAR DISORDER
     Dosage: 25MG TWICE PER DAY
     Route: 048
     Dates: end: 20060412
  2. CELEXA [Concomitant]
     Route: 048
  3. WELLBUTRIN SR [Concomitant]
     Dosage: 100MG TWICE PER DAY
  4. AMBIEN [Concomitant]

REACTIONS (3)
  - PHOTOSENSITIVITY REACTION [None]
  - PRURITUS [None]
  - RASH [None]
